FAERS Safety Report 10089963 (Version 1)
Quarter: 2014Q2

REPORT INFORMATION
  Report Type: Spontaneous
  Country: US (occurrence: US)
  Receive Date: 20140421
  Receipt Date: 20140421
  Transmission Date: 20141212
  Serious: No
  Sender: FDA-Public Use
  Company Number: US-ABBVIE-14P-163-1201166-00

PATIENT
  Age: 13 Year
  Sex: Male
  Weight: 44.49 kg

DRUGS (1)
  1. LUPRON DEPOT-PED [Suspect]
     Indication: PRECOCIOUS PUBERTY
     Route: 030
     Dates: start: 20140211, end: 20140211

REACTIONS (1)
  - Drug dispensing error [Recovered/Resolved]
